FAERS Safety Report 6140038-X (Version None)
Quarter: 2009Q2

REPORT INFORMATION
  Report Type: 
  Country: None (occurrence: None)
  Receive Date: 20090401
  Receipt Date: 20090321
  Transmission Date: 20091009
  Serious: Yes (Other)
  Sender: FDA-Public Use
  Company Number: US-JNJFOC-20090306179

PATIENT
  Sex: Female
  Weight: 49.9 kg

DRUGS (3)
  1. EXTRA STRENGTH TYLENOL [Suspect]
     Route: 048
  2. EXTRA STRENGTH TYLENOL [Suspect]
     Indication: DRUG USE FOR UNKNOWN INDICATION
     Dosage: ^1/2 OF A  BOTTLE^
     Route: 048
  3. UNSPECIFIED MEDICATIONS [Concomitant]

REACTIONS (6)
  - ANGER [None]
  - CONTUSION [None]
  - INTENTIONAL OVERDOSE [None]
  - SELF INJURIOUS BEHAVIOUR [None]
  - STRESS [None]
  - SWELLING [None]
